FAERS Safety Report 4894975-4 (Version None)
Quarter: 2006Q1

REPORT INFORMATION
  Report Type: 
  Country: None (occurrence: None)
  Receive Date: 20060130
  Receipt Date: 20050614
  Transmission Date: 20060701
  Serious: No
  Sender: FDA-Public Use
  Company Number: US-BRISTOL-MYERS SQUIBB COMPANY-13004767

PATIENT
  Age: 65 Year
  Sex: Male

DRUGS (3)
  1. GLUCOPHAGE [Suspect]
     Indication: DIABETES MELLITUS
     Route: 048
  2. CLARITIN-D [Suspect]
     Indication: RHINITIS
     Route: 048
     Dates: start: 20040201
  3. INSULIN [Suspect]
     Indication: DIABETES MELLITUS
     Route: 058

REACTIONS (1)
  - VISION BLURRED [None]
